FAERS Safety Report 8429180-8 (Version None)
Quarter: 2012Q2

REPORT INFORMATION
  Report Type: 
  Country: None (occurrence: None)
  Receive Date: 20120612
  Receipt Date: 20120531
  Transmission Date: 20120825
  Serious: Yes (Hospitalization, Other)
  Sender: FDA-Public Use
  Company Number: FR-BRISTOL-MYERS SQUIBB COMPANY-16659161

PATIENT
  Age: 83 Year
  Sex: Male

DRUGS (8)
  1. ALDACTONE [Concomitant]
     Dosage: ALDACTONE 25 MG, SCORED FILM-COATED TABLET 25 MG DAILY IN THE MORNING
     Route: 048
  2. LASIX [Concomitant]
     Dosage: LASILIX 40 MG, SCORED TABLET
     Route: 048
  3. ACETAMINOPHEN [Concomitant]
     Route: 048
     Dates: start: 20120311
  4. COUMADIN [Suspect]
     Indication: MITRAL VALVE REPLACEMENT
     Dosage: COUMADINE 2 MG SCORED TABLET THERAPY STOP DT:20MAR12 RESTARTED:23-MAR-2012
     Route: 048
  5. AZITHROMYCIN [Interacting]
     Dosage: AZITHROMYCINE TEVA 250 MG, FILM-COATED TABLET
     Route: 048
     Dates: start: 20120311, end: 20120315
  6. DEBRIDAT [Concomitant]
     Route: 048
  7. TIXOCORTOL PIVALATE [Concomitant]
     Dosage: PIVALONE 1 %, NASAL SUSPENSION.
     Route: 045
     Dates: start: 20120311, end: 20120315
  8. TUSSIDANE [Concomitant]
     Dosage: TUSSIDANE 1.5 MG/ML SYRUP
     Route: 048
     Dates: start: 20120311, end: 20120315

REACTIONS (3)
  - INTERNATIONAL NORMALISED RATIO INCREASED [None]
  - DRUG INTERACTION [None]
  - INFLUENZA [None]
